FAERS Safety Report 8879689 (Version 1)
Quarter: 2012Q4

REPORT INFORMATION
  Report Type: 
  Country: CN (occurrence: CN)
  Receive Date: 20121031
  Receipt Date: 20121031
  Transmission Date: 20130627
  Serious: Yes (Other)
  Sender: FDA-Public Use
  Company Number: CN-GLAXOSMITHKLINE-B0841237A

PATIENT
  Age: 25 Year
  Sex: Male
  Weight: 70 kg

DRUGS (2)
  1. HEPTODIN [Suspect]
     Indication: HEPATITIS B
     Dosage: 100MG per day
     Route: 048
     Dates: start: 201204, end: 201209
  2. UNKNOWN DRUG [Concomitant]
     Indication: HEPATITIS B
     Route: 048
     Dates: start: 201204, end: 201209

REACTIONS (3)
  - Alanine aminotransferase increased [Unknown]
  - Aspartate aminotransferase increased [Unknown]
  - Drug resistance [Unknown]
